FAERS Safety Report 7290969-2 (Version None)
Quarter: 2011Q1

REPORT INFORMATION
  Report Type: 
  Country: None (occurrence: None)
  Receive Date: 20110214
  Receipt Date: 20110131
  Transmission Date: 20110831
  Serious: Yes (Death, Hospitalization)
  Sender: FDA-Public Use
  Company Number: DE-ACTELION-A-US2011-44506

PATIENT

DRUGS (2)
  1. BLINDED VENTAVIS [Suspect]
     Indication: PULMONARY ARTERIAL HYPERTENSION
     Dosage: 5 ?G, UNK
     Route: 055
     Dates: start: 20100126
  2. BLINDED VENTAVIS [Suspect]
     Dosage: 5 ?G, UNK
     Route: 055
     Dates: start: 20100126

REACTIONS (2)
  - PULMONARY ARTERIAL HYPERTENSION [None]
  - INFECTION [None]
